FAERS Safety Report 8186828-3 (Version None)
Quarter: 2012Q1

REPORT INFORMATION
  Report Type: 
  Country: None (occurrence: None)
  Receive Date: 20120306
  Receipt Date: 20120223
  Transmission Date: 20120608
  Serious: Yes (Other)
  Sender: FDA-Public Use
  Company Number: US-BRISTOL-MYERS SQUIBB COMPANY-16420291

PATIENT
  Age: 62 Year
  Sex: Female
  Weight: 69 kg

DRUGS (7)
  1. MORPHINE [Concomitant]
  2. OXYCODONE HCL [Concomitant]
  3. VALIUM [Concomitant]
  4. LYRICA [Concomitant]
     Dosage: NEXT: 9MAR12.
     Dates: start: 20110101
  5. IXEMPRA KIT [Suspect]
     Indication: BREAST CANCER
     Dosage: TOTAL: 3 TREATMENTS,. INTERRUPTED ON AUG11, RESUMED ON OCT11.HELD BETWEEN OCT11 AND JAN12
     Dates: start: 20110601
  6. DILAUDID [Concomitant]
  7. OXYCONTIN [Concomitant]

REACTIONS (6)
  - SCIATICA [None]
  - MEMORY IMPAIRMENT [None]
  - NEUROPATHY PERIPHERAL [None]
  - SPONDYLOLYSIS [None]
  - INTERVERTEBRAL DISC DEGENERATION [None]
  - NAIL DISORDER [None]
